FAERS Safety Report 7357155-9 (Version None)
Quarter: 2011Q1

REPORT INFORMATION
  Report Type: 
  Country: None (occurrence: None)
  Receive Date: 20110308
  Receipt Date: 20101117
  Transmission Date: 20110831
  Serious: Yes (Hospitalization, Other)
  Sender: FDA-Public Use
  Company Number: 028205

PATIENT
  Sex: Male

DRUGS (14)
  1. LAMOTRIGINE [Concomitant]
  2. PHENOBARBITONE SODIUM [Concomitant]
  3. KEPPRA [Suspect]
     Dosage: () (1000 MG BID)
  4. PHENYTOIN [Concomitant]
  5. ZENTROPIL /00017401/ [Concomitant]
  6. RISPERIDONE [Concomitant]
  7. VALPROIC ACID [Concomitant]
  8. ZONISAMIDE [Concomitant]
  9. TOPIRAMATE [Concomitant]
  10. OXCARBAZEPINE [Concomitant]
  11. VIMPAT [Suspect]
     Dosage: (UNKNOWN DOSE) (100 MG BID) (150 MG BID) (400 MG) (200 MG TID)
     Dates: end: 20100101
  12. VIMPAT [Suspect]
     Dosage: (UNKNOWN DOSE) (100 MG BID) (150 MG BID) (400 MG) (200 MG TID)
     Dates: start: 20090101, end: 20090101
  13. VIMPAT [Suspect]
     Dosage: (UNKNOWN DOSE) (100 MG BID) (150 MG BID) (400 MG) (200 MG TID)
     Dates: start: 20090101
  14. VIMPAT [Suspect]
     Dosage: (UNKNOWN DOSE) (100 MG BID) (150 MG BID) (400 MG) (200 MG TID)
     Dates: start: 20100101

REACTIONS (5)
  - HYPOTHYROIDISM [None]
  - DIZZINESS [None]
  - HYPERTENSION [None]
  - PARTIAL SEIZURES [None]
  - PSYCHOTIC DISORDER [None]
